FAERS Safety Report 7914870-3 (Version None)
Quarter: 2011Q4

REPORT INFORMATION
  Report Type: 
  Country: None (occurrence: None)
  Receive Date: 20111115
  Receipt Date: 20111109
  Transmission Date: 20120403
  Serious: Yes (Other)
  Sender: FDA-Public Use
  Company Number: US-B.I. PHARMACEUTICALS,INC./RIDGEFIELD-2011-BP-22255BP

PATIENT
  Sex: Female

DRUGS (19)
  1. NASACORT [Concomitant]
  2. VITAMIN E [Concomitant]
     Dosage: 400 U
  3. CALTRATE WITH VITAMIN D [Concomitant]
  4. EPIPEN [Concomitant]
     Indication: ANAPHYLACTIC REACTION
  5. VITAMIN B COMPLEX CAP [Concomitant]
  6. AMLODIPINE [Concomitant]
     Indication: BLOOD PRESSURE SYSTOLIC
     Dosage: 5 MG
  7. SIMPLY SALINE [Concomitant]
     Indication: NASAL CONGESTION
  8. ALLEGRA [Concomitant]
     Dosage: 180 MG
  9. ADVAIR DISKUS 100/50 [Concomitant]
     Route: 048
  10. MICARDIS HCT [Suspect]
     Indication: HYPERTENSION
     Route: 048
     Dates: start: 20060101, end: 20111018
  11. ASCORBIC ACID [Concomitant]
     Dosage: 1000 MG
  12. FLAXSEED [Concomitant]
  13. ROPINIROLE [Concomitant]
  14. TOPAMAX [Concomitant]
     Indication: CONVULSION
  15. ACTONEL [Concomitant]
  16. GENERIC METAMUCIL [Concomitant]
  17. VIMPAT [Concomitant]
     Dosage: 200 MG
  18. ASPIRIN [Concomitant]
  19. VITAMIN D [Concomitant]
     Dosage: 5200 U

REACTIONS (6)
  - INCREASED UPPER AIRWAY SECRETION [None]
  - TRANSIENT ISCHAEMIC ATTACK [None]
  - GASTROOESOPHAGEAL REFLUX DISEASE [None]
  - CONVULSION [None]
  - ALLERGY TO CHEMICALS [None]
  - BLOOD PRESSURE FLUCTUATION [None]
